FAERS Safety Report 21692702 (Version 1)
Quarter: 2022Q4

REPORT INFORMATION
  Report Type: Spontaneous
  Country: GB (occurrence: GB)
  Receive Date: 20221207
  Receipt Date: 20221207
  Transmission Date: 20230112
  Serious: No
  Sender: FDA-Public Use
  Company Number: None

PATIENT
  Age: 47 Year
  Sex: Male
  Weight: 97.5 kg

DRUGS (11)
  1. TOLVAPTAN [Suspect]
     Active Substance: TOLVAPTAN
     Indication: Congenital cystic kidney disease
     Dosage: 15 MILLIGRAM TABLET (UNCOATED, ORAL)
     Route: 048
     Dates: start: 20180123
  2. TOLVAPTAN [Suspect]
     Active Substance: TOLVAPTAN
     Dosage: 45 MILLIGRAM TABLET (UNCOATED, ORAL)
     Route: 048
     Dates: start: 20220607
  3. TOLVAPTAN [Suspect]
     Active Substance: TOLVAPTAN
     Dosage: 30 MILLIGRAM TABLET (UNCOATED, ORAL)
     Route: 048
     Dates: start: 20180220
  4. TOLVAPTAN [Suspect]
     Active Substance: TOLVAPTAN
     Dosage: 60 MILLIGRAM TABLET (UNCOATED, ORAL)
     Route: 048
     Dates: start: 20180220
  5. TOLVAPTAN [Suspect]
     Active Substance: TOLVAPTAN
     Dosage: 30 MILLIGRAM TABLET (UNCOATED, ORAL)
     Route: 048
     Dates: start: 20180320
  6. TOLVAPTAN [Suspect]
     Active Substance: TOLVAPTAN
     Dosage: 90 MILLIGRAM TABLET (UNCOATED, ORAL)
     Route: 048
     Dates: start: 20180320
  7. TOLVAPTAN [Suspect]
     Active Substance: TOLVAPTAN
     Dosage: 45 MILLIGRAM TABLET (UNCOATED, ORAL)
     Route: 048
     Dates: start: 20180123
  8. TOLVAPTAN [Suspect]
     Active Substance: TOLVAPTAN
     Dosage: 15 MILLIGRAM TABLET (UNCOATED, ORAL)
     Route: 048
     Dates: start: 20220607
  9. RAMIPRIL [Concomitant]
     Active Substance: RAMIPRIL
     Indication: Product used for unknown indication
     Dosage: 10 MILLIGRAM, QD (1 DAY)
     Route: 048
     Dates: start: 20190129
  10. RAMIPRIL [Concomitant]
     Active Substance: RAMIPRIL
     Dosage: 7.5 MILLIGRAM, QD
     Route: 048
     Dates: start: 20121219, end: 20190129
  11. SIMVASTATIN [Concomitant]
     Active Substance: SIMVASTATIN
     Indication: Product used for unknown indication
     Dosage: 40 MILLIGRAM, QD (1 DAY)
     Route: 048
     Dates: start: 20121219

REACTIONS (2)
  - Nocturia [Recovered/Resolved]
  - Somnolence [Unknown]

NARRATIVE: CASE EVENT DATE: 20180220
